FAERS Safety Report 5422246-6 (Version None)
Quarter: 2007Q3

REPORT INFORMATION
  Report Type: 
  Country: None (occurrence: None)
  Receive Date: 20070822
  Receipt Date: 20070816
  Transmission Date: 20080115
  Serious: Yes (Death)
  Sender: FDA-Public Use
  Company Number: JP-AVENTIS-200712105JP

PATIENT
  Age: 72 Year
  Sex: Male
  Weight: 50 kg

DRUGS (9)
  1. TAXOTERE [Suspect]
     Indication: PROSTATE CANCER RECURRENT
     Route: 041
     Dates: start: 20070522, end: 20070717
  2. PACLITAXEL [Concomitant]
     Dosage: DOSE: 8 COURSES
     Dates: start: 20050712
  3. DUROTEP [Concomitant]
     Indication: PROSTATE CANCER METASTATIC
     Route: 003
  4. LOXONIN                            /00890701/ [Concomitant]
     Indication: PROSTATE CANCER METASTATIC
     Dosage: FREQUENCY: AFTER MEALS
     Route: 048
  5. SELBEX [Concomitant]
     Indication: PROPHYLAXIS
     Dosage: FREQUENCY: AFTER MEALS
     Route: 048
  6. DECADRON [Concomitant]
     Indication: PNEUMONIA
     Dosage: DOSE: 1 TABLET/DAY
     Route: 048
  7. MAGLAX [Concomitant]
     Dosage: DOSE: 4 TABLETS/DAY; FREQUENCY: AFTER MEALS
     Route: 048
  8. PRIMPERAN                          /00041901/ [Concomitant]
     Dosage: DOSE: 3 TABLETS/DAY; FREQUENCY: AFTER MEALS
     Route: 048
  9. HALCION [Concomitant]
     Route: 048

REACTIONS (1)
  - INTERSTITIAL LUNG DISEASE [None]
